FAERS Safety Report 10090002 (Version 2)
Quarter: 2014Q2

REPORT INFORMATION
  Report Type: Report from Study
  Country: CA (occurrence: CA)
  Receive Date: 20140421
  Receipt Date: 20140606
  Transmission Date: 20141212
  Serious: Yes (Hospitalization, Other)
  Sender: FDA-Public Use
  Company Number: CA-JNJFOC-20140411447

PATIENT
  Age: 58 Year
  Sex: Male
  Weight: 74 kg

DRUGS (10)
  1. REMICADE [Suspect]
     Indication: COLITIS ULCERATIVE
     Route: 042
     Dates: start: 20140415
  2. REMICADE [Suspect]
     Indication: COLITIS ULCERATIVE
     Route: 042
     Dates: start: 20120621
  3. METOPROLOL [Concomitant]
     Route: 065
  4. FERROUS FUMERATE [Concomitant]
     Route: 065
  5. SYMBICORT [Concomitant]
     Dosage: 200 1 PUFF ONCE IN AM AND PM
     Route: 065
  6. SALMON OIL [Concomitant]
     Route: 065
  7. ASA [Concomitant]
     Route: 065
  8. EZETROL [Concomitant]
     Route: 065
  9. PREDNISONE [Concomitant]
     Dosage: TAPERING DOSE
     Route: 065
  10. MULTIVITAMINS [Concomitant]
     Route: 065

REACTIONS (2)
  - Fistula [Recovering/Resolving]
  - Diarrhoea [Recovering/Resolving]
